FAERS Safety Report 9877868 (Version 1)
Quarter: 2014Q1

REPORT INFORMATION
  Report Type: Spontaneous
  Country: US (occurrence: US)
  Receive Date: 20140206
  Receipt Date: 20140206
  Transmission Date: 20141002
  Serious: Yes (Other)
  Sender: FDA-Public Use
  Company Number: US-SA-2014SA014746

PATIENT
  Sex: Female

DRUGS (1)
  1. AMBIEN [Suspect]
     Indication: PRODUCT USED FOR UNKNOWN INDICATION
     Route: 048

REACTIONS (6)
  - Road traffic accident [Unknown]
  - Glassy eyes [Unknown]
  - Economic problem [Unknown]
  - Somnambulism [Unknown]
  - Somnambulism [Unknown]
  - Dizziness [Unknown]
